FAERS Safety Report 6295969-7 (Version None)
Quarter: 2009Q3

REPORT INFORMATION
  Report Type: 
  Country: None (occurrence: None)
  Receive Date: 20090731
  Receipt Date: 20090722
  Transmission Date: 20100115
  Serious: Yes (Hospitalization)
  Sender: FDA-Public Use
  Company Number: ADE2009-0728

PATIENT
  Age: 45 Year
  Sex: Female

DRUGS (3)
  1. ALENDRONATE SODIUM [Suspect]
     Indication: OSTEOPOROSIS
     Dosage: 70MG, WEEKLY
  2. INHALED SALMETEROL [Concomitant]
  3. FLUTICASONE [Concomitant]

REACTIONS (2)
  - ASTHMA [None]
  - TACHYCARDIA [None]
